FAERS Safety Report 16203003 (Version 2)
Quarter: 2019Q2

REPORT INFORMATION
  Report Type: Spontaneous
  Country: IL (occurrence: IL)
  Receive Date: 20190416
  Receipt Date: 20190517
  Transmission Date: 20190711
  Serious: Yes (Death, Hospitalization)
  Sender: FDA-Public Use
  Company Number: IL-ACTELION-A-CH2018-165487

PATIENT
  Age: 72 Year
  Sex: Female

DRUGS (10)
  1. LIPITOR [Concomitant]
     Active Substance: ATORVASTATIN CALCIUM
  2. OMEPRAZOLE. [Concomitant]
     Active Substance: OMEPRAZOLE
  3. UPTRAVI [Suspect]
     Active Substance: SELEXIPAG
     Indication: PULMONARY ARTERIAL HYPERTENSION
     Dosage: UNK
     Route: 048
     Dates: start: 20180222
  4. UPTRAVI [Suspect]
     Active Substance: SELEXIPAG
     Dosage: UNK
     Route: 048
     Dates: start: 20181227
  5. UPTRAVI [Suspect]
     Active Substance: SELEXIPAG
     Dosage: 1600 MCG, QD
     Route: 048
  6. OPSUMIT [Suspect]
     Active Substance: MACITENTAN
     Indication: PULMONARY ARTERIAL HYPERTENSION
     Dosage: 10 MG, QD
     Route: 048
     Dates: start: 20171129, end: 20190510
  7. TRITACE [Concomitant]
     Active Substance: RAMIPRIL
  8. CARDILOC [Concomitant]
     Active Substance: BISOPROLOL FUMARATE
  9. ALDACTONE [Concomitant]
     Active Substance: SPIRONOLACTONE
  10. ELTROXIN [Concomitant]
     Active Substance: LEVOTHYROXINE

REACTIONS (10)
  - Condition aggravated [Fatal]
  - Drug ineffective [Fatal]
  - Cardiac arrest [Fatal]
  - Gamma-glutamyltransferase increased [Unknown]
  - Pericardial drainage [Recovered/Resolved]
  - Dyspnoea [Fatal]
  - Dyspnoea at rest [Fatal]
  - Oedema peripheral [Fatal]
  - Pulmonary arterial hypertension [Fatal]
  - Pericardial effusion [Recovered/Resolved]

NARRATIVE: CASE EVENT DATE: 20180103
